FAERS Safety Report 10949914 (Version 3)
Quarter: 2015Q4

REPORT INFORMATION
  Report Type: Spontaneous
  Country: US (occurrence: US)
  Receive Date: 20150324
  Receipt Date: 20151111
  Transmission Date: 20160304
  Serious: Yes (Other)
  Sender: FDA-Public Use
  Company Number: US-TEVA-548954USA

PATIENT
  Sex: Female

DRUGS (1)
  1. COPAXONE [Suspect]
     Active Substance: GLATIRAMER ACETATE
     Route: 058

REACTIONS (4)
  - Motor dysfunction [Unknown]
  - Drug hypersensitivity [Unknown]
  - Multiple sclerosis relapse [Unknown]
  - Dysstasia [Unknown]

NARRATIVE: CASE EVENT DATE: 1997
